FAERS Safety Report 5124991-9 (Version None)
Quarter: 2006Q4

REPORT INFORMATION
  Report Type: 
  Country: None (occurrence: None)
  Receive Date: 20061011
  Receipt Date: 20051115
  Transmission Date: 20070319
  Serious: Yes (Other)
  Sender: FDA-Public Use
  Company Number: GB-GLAXOSMITHKLINE-B0400661A

PATIENT
  Age: 36 Year
  Sex: Female
  Weight: 68 kg

DRUGS (2)
  1. ZOFRAN [Suspect]
     Indication: PROPHYLAXIS OF NAUSEA AND VOMITING
     Dosage: 5ML TWICE PER DAY
     Route: 048
     Dates: start: 20051115, end: 20051231
  2. LACTULOSE [Suspect]
     Dates: start: 20051123, end: 20051231

REACTIONS (2)
  - DRUG EXPOSURE DURING PREGNANCY [None]
  - HYPEREMESIS GRAVIDARUM [None]
